FAERS Safety Report 8917630 (Version 1)
Quarter: 2012Q4

REPORT INFORMATION
  Report Type: 
  Country: CL (occurrence: CL)
  Receive Date: 20121119
  Receipt Date: 20121119
  Transmission Date: 20130627
  Serious: No
  Sender: FDA-Public Use
  Company Number: CL-MERCK-1211CHL004576

PATIENT
  Age: 65 Year
  Sex: Male
  Weight: 64.5 kg

DRUGS (9)
  1. BLINDED PEGINTERFERON ALFA-2B [Suspect]
     Indication: CHRONIC HEPATITIS C
     Dosage: UNK
     Route: 048
     Dates: start: 20100824, end: 20110726
  2. BLINDED PEGINTERFERON ALFA-2B [Suspect]
     Indication: CHRONIC HEPATITIS C
     Dosage: UNK
     Route: 048
     Dates: start: 20100824, end: 20110726
  3. BLINDED PLACEBO [Suspect]
     Indication: CHRONIC HEPATITIS C
     Dosage: UNK
     Route: 048
     Dates: start: 20100824, end: 20110726
  4. BLINDED POST TRIAL THERAPY [Suspect]
     Indication: CHRONIC HEPATITIS C
     Dosage: UNK
     Route: 048
     Dates: start: 20100824, end: 20110726
  5. BLINDED PRE TRIAL THERAPY [Suspect]
     Indication: CHRONIC HEPATITIS C
     Dosage: UNK
     Route: 048
     Dates: start: 20100824, end: 20110726
  6. BLINDED RIBAVIRIN [Suspect]
     Indication: CHRONIC HEPATITIS C
     Dosage: UNK
     Route: 048
     Dates: start: 20100824, end: 20110726
  7. VANIPREVIR [Suspect]
     Indication: CHRONIC HEPATITIS C
     Dosage: UNK
     Route: 048
     Dates: start: 20100824, end: 20110726
  8. PEGASYS [Concomitant]
     Indication: CHRONIC HEPATITIS C
     Dosage: 180 Microgram, qw
     Route: 058
     Dates: start: 20100824, end: 20110726
  9. COPEGUS [Concomitant]
     Indication: CHRONIC HEPATITIS C
     Dosage: 1200 mg, UNK
     Route: 048
     Dates: start: 20100824, end: 20110726

REACTIONS (1)
  - Extra-osseous Ewing^s sarcoma [Not Recovered/Not Resolved]
